FAERS Safety Report 16765281 (Version 1)
Quarter: 2019Q3

REPORT INFORMATION
  Report Type: Spontaneous
  Country: US (occurrence: US)
  Receive Date: 20190903
  Receipt Date: 20190903
  Transmission Date: 20191005
  Serious: No
  Sender: FDA-Public Use
  Company Number: US-LUNDBECK-DKLU3002342

PATIENT
  Age: 43 Year
  Sex: Female

DRUGS (2)
  1. NORTHERA [Suspect]
     Active Substance: DROXIDOPA
     Indication: MYASTHENIC SYNDROME
     Dosage: 300MG AND 200MG TO MAKE UP 500MG TID
     Route: 048
     Dates: start: 20190701
  2. NORTHERA [Suspect]
     Active Substance: DROXIDOPA
     Dosage: 300MG AND 200MG TO MAKE UP 500MG TID
     Route: 048
     Dates: start: 20190701

REACTIONS (1)
  - Headache [Unknown]

NARRATIVE: CASE EVENT DATE: 201907
